FAERS Safety Report 7546325-2 (Version None)
Quarter: 2011Q2

REPORT INFORMATION
  Report Type: 
  Country: None (occurrence: None)
  Receive Date: 20110614
  Receipt Date: 20051230
  Transmission Date: 20111010
  Serious: Yes (Life-Threatening, Hospitalization, Other)
  Sender: FDA-Public Use
  Company Number: PHNR2005AU01506

PATIENT
  Sex: Female

DRUGS (5)
  1. HYDROXYUREA [Concomitant]
  2. CLOZAPINE [Suspect]
     Indication: SCHIZOPHRENIA
     Dosage: 225 MG, UNK
     Dates: start: 20050818, end: 20051007
  3. CLOZAPINE [Suspect]
     Dosage: 325 MG, UNK
  4. ACETAMINOPHEN [Concomitant]
  5. TEMAZEPAM [Concomitant]

REACTIONS (21)
  - GASTROINTESTINAL INFLAMMATION [None]
  - ASCITES [None]
  - CELL MARKER INCREASED [None]
  - GASTRIC ULCER PERFORATION [None]
  - LYMPHOCYTIC INFILTRATION [None]
  - FIBROSIS [None]
  - GASTROINTESTINAL HAEMORRHAGE [None]
  - DUODENAL ULCER [None]
  - PEPTIC ULCER PERFORATION [None]
  - SEROSITIS [None]
  - BIOPSY STOMACH [None]
  - OEDEMA MUCOSAL [None]
  - NAUSEA [None]
  - BIOPSY ABDOMINAL WALL ABNORMAL [None]
  - GASTRITIS [None]
  - HELICOBACTER GASTRITIS [None]
  - ABDOMINAL PAIN UPPER [None]
  - FIBRIN [None]
  - SKIN EXFOLIATION [None]
  - METAPLASIA [None]
  - PEPTIC ULCER [None]
